FAERS Safety Report 7725383-6 (Version None)
Quarter: 2011Q3

REPORT INFORMATION
  Report Type: 
  Country: None (occurrence: None)
  Receive Date: 20110902
  Receipt Date: 20110822
  Transmission Date: 20111222
  Serious: Yes (Hospitalization, Other)
  Sender: FDA-Public Use
  Company Number: DE-JNJFOC-20110404587

PATIENT
  Sex: Female
  Weight: 47 kg

DRUGS (11)
  1. PALEXIA RETARD [Suspect]
     Route: 065
     Dates: start: 20110209, end: 20110209
  2. PALEXIA RETARD [Suspect]
     Route: 065
     Dates: start: 20110209, end: 20110209
  3. MORPHINE [Concomitant]
     Route: 065
  4. PALEXIA RETARD [Suspect]
     Indication: POST-TRAUMATIC PAIN
     Route: 065
     Dates: start: 20110105, end: 20110105
  5. AMITRIPTYLINE HCL [Suspect]
     Route: 065
     Dates: start: 20100101
  6. PALEXIA RETARD [Suspect]
     Route: 065
     Dates: start: 20110209, end: 20110209
  7. PALEXIA RETARD [Suspect]
     Indication: COMPLEX REGIONAL PAIN SYNDROME
     Route: 065
     Dates: start: 20110105, end: 20110105
  8. LAXATIVES [Concomitant]
     Route: 065
  9. AMITRIPTYLINE HCL [Suspect]
     Route: 065
  10. PALEXIA RETARD [Suspect]
     Indication: PAIN
     Route: 065
     Dates: start: 20110105, end: 20110105
  11. AMITRIPTYLINE HCL [Suspect]
     Indication: NEURALGIA
     Route: 065

REACTIONS (7)
  - NAUSEA [None]
  - TREMOR [None]
  - TACHYCARDIA [None]
  - SEROTONIN SYNDROME [None]
  - VOMITING [None]
  - PYREXIA [None]
  - RESTLESSNESS [None]
